FAERS Safety Report 16326598 (Version 2)
Quarter: 2020Q1

REPORT INFORMATION
  Report Type: Spontaneous
  Country: US (occurrence: CA)
  Receive Date: 20190517
  Receipt Date: 20200204
  Transmission Date: 20200409
  Serious: Yes (Hospitalization, Other)
  Sender: FDA-Public Use
  Company Number: CA-TEVA-2019-CA-1048730

PATIENT
  Age: 63 Year
  Sex: Female

DRUGS (3)
  1. FENTANYL. [Suspect]
     Active Substance: FENTANYL
     Indication: PAIN
     Dosage: THREE PATCHES
     Route: 062
  2. PREGABALIN. [Concomitant]
     Active Substance: PREGABALIN
     Dosage: 150 MILLIGRAM DAILY;
  3. ZOPICLONE [Concomitant]
     Active Substance: ZOPICLONE
     Dosage: 7.5 MILLIGRAM DAILY; EVERY NIGHT AT BEDTIME

REACTIONS (10)
  - Amnesia [Not Recovered/Not Resolved]
  - Unresponsive to stimuli [Recovered/Resolved]
  - Blood pressure decreased [Unknown]
  - Brain injury [Not Recovered/Not Resolved]
  - Anterograde amnesia [Not Recovered/Not Resolved]
  - Amnestic disorder [Unknown]
  - Oxygen saturation decreased [Unknown]
  - Cognitive disorder [Not Recovered/Not Resolved]
  - Heart rate increased [Unknown]
  - Magnetic resonance imaging abnormal [Recovered/Resolved]
